FAERS Safety Report 8969817 (Version 2)
Quarter: 2013Q1

REPORT INFORMATION
  Report Type: Spontaneous
  Country: US (occurrence: US)
  Receive Date: 20121217
  Receipt Date: 20130225
  Transmission Date: 20140127
  Serious: Yes (Hospitalization, Disabling, Other)
  Sender: FDA-Public Use
  Company Number: US-009507513-1212USA003600

PATIENT
  Sex: Female
  Weight: 117.91 kg

DRUGS (1)
  1. NUVARING [Suspect]
     Indication: CONTRACEPTION
     Dosage: UNK
     Route: 067
     Dates: start: 20060915, end: 20101124

REACTIONS (21)
  - Meningitis cryptococcal [Unknown]
  - Pulmonary embolism [Unknown]
  - Foot fracture [Unknown]
  - Pregnancy [Recovered/Resolved]
  - Ligament sprain [Unknown]
  - Ovarian cyst [Unknown]
  - Blood pressure abnormal [Unknown]
  - Immobile [Unknown]
  - Migraine [Unknown]
  - Obesity [Unknown]
  - Cervical dysplasia [Unknown]
  - Papilloma viral infection [Unknown]
  - Loop electrosurgical excision procedure [Unknown]
  - Irritable bowel syndrome [Unknown]
  - Drug hypersensitivity [Unknown]
  - Colposcopy [Unknown]
  - Fall [Unknown]
  - Ankle fracture [Unknown]
  - Tonsillectomy [Unknown]
  - Cervical dysplasia [Unknown]
  - Maternal exposure before pregnancy [Unknown]
